FAERS Safety Report 23675036 (Version 1)
Quarter: 2024Q1

REPORT INFORMATION
  Report Type: Spontaneous
  Country: CO (occurrence: CO)
  Receive Date: 20240326
  Receipt Date: 20240326
  Transmission Date: 20240409
  Serious: Yes (Death, Other)
  Sender: FDA-Public Use
  Company Number: CO-TAKEDA-2024TUS028425

PATIENT
  Age: 28 Year
  Sex: Female
  Weight: 84 kg

DRUGS (1)
  1. ICLUSIG [Suspect]
     Active Substance: PONATINIB
     Indication: Acute lymphocytic leukaemia
     Dosage: 45 MILLIGRAM, QD
     Route: 048
     Dates: start: 20230915, end: 20240302

REACTIONS (2)
  - Lung disorder [Fatal]
  - Complications of bone marrow transplant [Fatal]

NARRATIVE: CASE EVENT DATE: 20240323
